FAERS Safety Report 4749430-9 (Version None)
Quarter: 2005Q3

REPORT INFORMATION
  Report Type: 
  Country: None (occurrence: None)
  Receive Date: 20050822
  Receipt Date: 20050708
  Transmission Date: 20060218
  Serious: Yes (Hospitalization)
  Sender: FDA-Public Use
  Company Number: US-SOLVAY-00205002221

PATIENT
  Age: 30045 Day
  Sex: Male
  Weight: 59 kg

DRUGS (4)
  1. ANDROGEL [Suspect]
     Indication: HYPOGONADISM
     Dosage: DAILY DOSE: 5 GRAM(S)
     Route: 062
     Dates: start: 20041210, end: 20050804
  2. ADVIL [Concomitant]
     Indication: ILL-DEFINED DISORDER
     Dosage: DAILY DOSE:  UNKNOWN PRN
     Route: 048
  3. CALCIUM GLUCONATE [Concomitant]
     Indication: OSTEOPENIA
     Dosage: DAILY DOSE: 1000 MILLIGRAM(S)
     Route: 048
  4. VITAMIN D [Concomitant]
     Indication: OSTEOPENIA
     Dosage: DAILY DOSE: 1000 INTERNATIONAL UNIT(S)
     Route: 048
     Dates: start: 20041201

REACTIONS (3)
  - CARDIAC FAILURE CONGESTIVE [None]
  - CONFUSIONAL STATE [None]
  - SYNCOPE [None]
